FAERS Safety Report 19756579 (Version 2)
Quarter: 2021Q4

REPORT INFORMATION
  Report Type: Spontaneous
  Country: US (occurrence: US)
  Receive Date: 20210828
  Receipt Date: 20211022
  Transmission Date: 20220303
  Serious: Yes (Other)
  Sender: FDA-Public Use
  Company Number: US-LUPIN PHARMACEUTICALS INC.-2021-15824

PATIENT
  Age: 47 Year
  Sex: Male

DRUGS (17)
  1. GABAPENTIN [Suspect]
     Active Substance: GABAPENTIN
     Indication: Phantom limb syndrome
     Dosage: 1200 MILLIGRAM, TID (EVERY 8 HOURS)
     Route: 048
  2. MEXILETINE [Concomitant]
     Active Substance: MEXILETINE
     Indication: Phantom limb syndrome
     Dosage: UNK UNK, QD
     Route: 048
  3. ROPIVACAINE. [Concomitant]
     Active Substance: ROPIVACAINE HYDROCHLORIDE
     Indication: Phantom limb syndrome
     Dosage: UNK
     Route: 065
  4. EFFEXOR [Concomitant]
     Active Substance: VENLAFAXINE HYDROCHLORIDE
     Indication: Phantom limb syndrome
     Dosage: UNK
     Route: 065
  5. LIDOCAINE [Concomitant]
     Active Substance: LIDOCAINE
     Indication: Phantom limb syndrome
     Dosage: UNK
     Route: 042
  6. KETAMINE [Concomitant]
     Active Substance: KETAMINE
     Indication: Phantom limb syndrome
     Dosage: 0.5 MILLIGRAM/KILOGRAM, 1 HOUR, 7 DAYS
     Route: 042
  7. KETAMINE [Concomitant]
     Active Substance: KETAMINE
     Dosage: 600 MILLIGRAM, QD
     Route: 048
  8. KETAMINE [Concomitant]
     Active Substance: KETAMINE
     Dosage: UNK
     Route: 060
  9. KETAMINE [Concomitant]
     Active Substance: KETAMINE
     Dosage: 400 MILLIGRAM, QD
     Route: 048
  10. OXYCODONE [Concomitant]
     Active Substance: OXYCODONE
     Indication: Phantom limb syndrome
     Dosage: UNK
     Route: 065
  11. CANNABIDIOL [Concomitant]
     Active Substance: CANNABIDIOL
     Indication: Phantom limb syndrome
     Dosage: UNK
     Route: 055
  12. CANNABIDIOL [Concomitant]
     Active Substance: CANNABIDIOL
     Dosage: UNK
     Route: 048
  13. PREGABALIN [Concomitant]
     Active Substance: PREGABALIN
     Indication: Phantom limb syndrome
     Dosage: UNK
     Route: 065
  14. NORCO [Concomitant]
     Active Substance: ACETAMINOPHEN\HYDROCODONE BITARTRATE
     Indication: Phantom limb syndrome
     Dosage: UNK
     Route: 065
  15. HYDROMORPHONE [Concomitant]
     Active Substance: HYDROMORPHONE
     Indication: Phantom limb syndrome
     Dosage: 24?40 MG ORALLY PER DAY (160?280 MME ORAL MORPHINE PER DAY)
     Route: 048
  16. HYDROMORPHONE [Concomitant]
     Active Substance: HYDROMORPHONE
     Dosage: 24?40 MG ORALLY PER DAY (160?280 MME ORAL MORPHINE PER DAY)
     Route: 048
  17. CYMBALTA [Concomitant]
     Active Substance: DULOXETINE HYDROCHLORIDE
     Indication: Phantom limb syndrome
     Dosage: UNK
     Route: 065

REACTIONS (1)
  - Tinnitus [Unknown]
